FAERS Safety Report 5781459-4 (Version None)
Quarter: 2008Q2

REPORT INFORMATION
  Report Type: 
  Country: None (occurrence: None)
  Receive Date: 20080623
  Receipt Date: 20080610
  Transmission Date: 20081010
  Serious: Yes (Hospitalization, Other)
  Sender: FDA-Public Use
  Company Number: US-ROCHE-569584

PATIENT
  Age: 58 Year
  Sex: Male

DRUGS (5)
  1. PEGASYS [Suspect]
     Indication: HEPATITIS C
     Route: 065
     Dates: end: 20000101
  2. INTERFERON NOS [Suspect]
     Indication: HEPATITIS C
     Route: 065
  3. GLYBURIDE [Concomitant]
  4. CORGARD [Concomitant]
  5. ATACAND [Concomitant]

REACTIONS (4)
  - DEPRESSION [None]
  - DRUG INEFFECTIVE [None]
  - GALLBLADDER DISORDER [None]
  - PANCREATIC DISORDER [None]
